FAERS Safety Report 6958226-9 (Version None)
Quarter: 2010Q3

REPORT INFORMATION
  Report Type: 
  Country: None (occurrence: None)
  Receive Date: 20100830
  Receipt Date: 20100830
  Transmission Date: 20110219
  Serious: Yes (Life-Threatening, Hospitalization)
  Sender: FDA-Public Use
  Company Number: None

PATIENT
  Age: 63 Year
  Sex: Male
  Weight: 98.3 kg

DRUGS (5)
  1. MORPHINE [Suspect]
     Indication: PAIN
     Dosage: 60 MG TID PO
     Route: 048
     Dates: start: 20100721
  2. GABAPENTIN [Suspect]
     Indication: ANXIETY
     Dosage: 800 MG TID PO
     Route: 048
     Dates: start: 20091123
  3. GABAPENTIN [Suspect]
     Indication: DEPRESSION
     Dosage: 800 MG TID PO
     Route: 048
     Dates: start: 20091123
  4. GABAPENTIN [Suspect]
     Indication: INSOMNIA
     Dosage: 800 MG TID PO
     Route: 048
     Dates: start: 20091123
  5. GABAPENTIN [Suspect]
     Indication: PAIN
     Dosage: 800 MG TID PO
     Route: 048
     Dates: start: 20091123

REACTIONS (2)
  - RESPIRATORY ACIDOSIS [None]
  - RESPIRATORY FAILURE [None]
